FAERS Safety Report 4563783-6 (Version None)
Quarter: 2005Q1

REPORT INFORMATION
  Report Type: 
  Country: None (occurrence: None)
  Receive Date: 20050128
  Receipt Date: 20041001
  Transmission Date: 20050727
  Serious: No
  Sender: FDA-Public Use
  Company Number: US-GLAXOSMITHKLINE-A0528123A

PATIENT
  Age: 53 Year
  Sex: Female

DRUGS (3)
  1. MEPRON [Suspect]
     Indication: BABESIOSIS
     Dosage: 750MG TWICE PER DAY
     Route: 048
     Dates: start: 20040828
  2. SYNTHROID [Concomitant]
  3. ZITHROMAX [Concomitant]

REACTIONS (3)
  - BLOOD PRESSURE INCREASED [None]
  - HYPERHIDROSIS [None]
  - PALPITATIONS [None]
